FAERS Safety Report 20556259 (Version 4)
Quarter: 2022Q3

REPORT INFORMATION
  Report Type: Spontaneous
  Country: DE (occurrence: DE)
  Receive Date: 20220305
  Receipt Date: 20220719
  Transmission Date: 20221027
  Serious: Yes (Hospitalization)
  Sender: FDA-Public Use
  Company Number: DE-NOVARTISPH-NVSC2022DE021046

PATIENT
  Age: 37 Year
  Sex: Female
  Weight: 88 kg

DRUGS (7)
  1. CARBOPLATIN [Suspect]
     Active Substance: CARBOPLATIN
     Indication: Breast cancer female
     Dosage: UNK UNK, Q3W (5 AUC, Q21 DAYS)
     Route: 042
     Dates: start: 20211123
  2. CARBOPLATIN [Suspect]
     Active Substance: CARBOPLATIN
     Dosage: UNK UNK, Q3W (5 AUC, Q21 DAYS)
     Route: 042
     Dates: start: 20220118
  3. PACLITAXEL [Suspect]
     Active Substance: PACLITAXEL
     Indication: Breast cancer female
     Dosage: 80 MG/M2, QW
     Route: 042
     Dates: start: 20211123
  4. PACLITAXEL [Suspect]
     Active Substance: PACLITAXEL
     Dosage: 80 MG/M2, QW
     Route: 042
     Dates: start: 20220118
  5. PERTUZUMAB [Suspect]
     Active Substance: PERTUZUMAB
     Indication: Breast cancer female
     Dosage: 420 MG, Q3W (Q21 DAYS)
     Route: 042
     Dates: start: 20211123
  6. PERTUZUMAB [Suspect]
     Active Substance: PERTUZUMAB
     Dosage: 420 MG, Q3W (Q21 DAYS)
     Route: 042
     Dates: start: 20220118
  7. KALINOR [Concomitant]
     Indication: Hyperkalaemia
     Dosage: UNKNOWN
     Route: 065
     Dates: start: 20220124

REACTIONS (5)
  - Hepatotoxicity [Not Recovered/Not Resolved]
  - Diarrhoea [Recovered/Resolved]
  - Vomiting [Not Recovered/Not Resolved]
  - Nausea [Recovered/Resolved]
  - Cardiovascular disorder [Unknown]

NARRATIVE: CASE EVENT DATE: 20211123
